FAERS Safety Report 24976554 (Version 2)
Quarter: 2025Q1

REPORT INFORMATION
  Report Type: Report from Study
  Country: ES (occurrence: ES)
  Receive Date: 20250217
  Receipt Date: 20250226
  Transmission Date: 20250409
  Serious: Yes (Death)
  Sender: TEVA
  Company Number: ES-TEVA-VS-3299123

PATIENT

DRUGS (1)
  1. OXALIPLATIN [Suspect]
     Active Substance: OXALIPLATIN
     Indication: Colon cancer
     Route: 065

REACTIONS (3)
  - Porto-sinusoidal vascular disorder [Fatal]
  - Sepsis [Fatal]
  - Hepatic encephalopathy [Fatal]
